FAERS Safety Report 7782948-3 (Version None)
Quarter: 2011Q3

REPORT INFORMATION
  Report Type: 
  Country: None (occurrence: None)
  Receive Date: 20110928
  Receipt Date: 20110926
  Transmission Date: 20111222
  Serious: Yes (Disabling, Other)
  Sender: FDA-Public Use
  Company Number: US-PFIZER INC-2011229187

PATIENT
  Sex: Male
  Weight: 94 kg

DRUGS (2)
  1. PROCARDIA XL [Suspect]
     Indication: HYPERTENSION
     Dosage: 60 MG ORAL TABLET; DAILY DOSE NOT SPECIFIED
     Route: 048
     Dates: start: 19940101, end: 20110401
  2. NIFEDIPINE [Suspect]
     Dosage: DAILY DOSE NOT SPECIFIED
     Dates: start: 20110301, end: 20110401

REACTIONS (4)
  - DYSPHAGIA [None]
  - MALAISE [None]
  - ACTIVITIES OF DAILY LIVING IMPAIRED [None]
  - SQUAMOUS CELL CARCINOMA [None]
